FAERS Safety Report 4678304-7 (Version None)
Quarter: 2005Q2

REPORT INFORMATION
  Report Type: 
  Country: None (occurrence: None)
  Receive Date: 20050527
  Receipt Date: 20050520
  Transmission Date: 20051028
  Serious: Yes (Other)
  Sender: FDA-Public Use
  Company Number: 2005-05-0898

PATIENT
  Age: 30 Year
  Sex: Male

DRUGS (2)
  1. GARAMYCIN [Suspect]
     Indication: KERATITIS
     Dosage: Q1H OPHTHALMIC
  2. CHLORAMPHENICOL [Suspect]
     Indication: KERATITIS
     Dosage: Q1H OPHTHALMIC

REACTIONS (6)
  - ASTIGMATISM [None]
  - CORNEAL DISORDER [None]
  - CORNEAL OPACITY [None]
  - EYE PAIN [None]
  - LACRIMATION INCREASED [None]
  - PHOTOPHOBIA [None]
